FAERS Safety Report 9699196 (Version 2)
Quarter: 2013Q4

REPORT INFORMATION
  Report Type: Spontaneous
  Country: US (occurrence: US)
  Receive Date: 20131120
  Receipt Date: 20131120
  Transmission Date: 20140711
  Serious: No
  Sender: FDA-Public Use
  Company Number: US-GILEAD-2008-0014834

PATIENT
  Age: 49 Year
  Sex: Female
  Weight: 72.57 kg

DRUGS (7)
  1. LETAIRIS [Suspect]
     Indication: PULMONARY ARTERIAL HYPERTENSION
     Route: 048
     Dates: start: 20071005, end: 20080125
  2. GAMMA GLOBULIN [Concomitant]
     Indication: KAWASAKI^S DISEASE
     Route: 048
  3. VENTAVIS [Concomitant]
     Indication: PULMONARY ARTERIAL HYPERTENSION
     Route: 055
  4. URSODIOL [Concomitant]
     Indication: CHOLELITHIASIS
     Route: 048
  5. LASIX [Concomitant]
     Indication: FLUID RETENTION
     Route: 048
  6. ALDACTONE [Concomitant]
     Indication: FLUID RETENTION
     Route: 048
  7. IRON [Concomitant]
     Indication: MINERAL SUPPLEMENTATION
     Route: 048

REACTIONS (2)
  - Haemorrhage [Not Recovered/Not Resolved]
  - Headache [Not Recovered/Not Resolved]
